FAERS Safety Report 16524270 (Version 1)
Quarter: 2019Q3

REPORT INFORMATION
  Report Type: Spontaneous
  Country: FR (occurrence: FR)
  Receive Date: 20190702
  Receipt Date: 20190702
  Transmission Date: 20191004
  Serious: Yes (Other)
  Sender: FDA-Public Use
  Company Number: FR-LUNDBECK-DKLU2061436

PATIENT
  Age: 73 Year
  Sex: Female

DRUGS (5)
  1. PROPRANOLOL [Concomitant]
     Active Substance: PROPRANOLOL HYDROCHLORIDE
     Indication: PRODUCT USED FOR UNKNOWN INDICATION
     Route: 065
  2. URBANYL [Suspect]
     Active Substance: CLOBAZAM
     Indication: MIGRAINE WITH AURA
     Route: 065
     Dates: start: 1983
  3. URBANYL [Suspect]
     Active Substance: CLOBAZAM
     Indication: ANXIETY
     Route: 065
  4. URBANYL [Suspect]
     Active Substance: CLOBAZAM
     Route: 065
  5. KARDEGIC [Concomitant]
     Active Substance: ASPIRIN DL-LYSINE
     Indication: PRODUCT USED FOR UNKNOWN INDICATION
     Route: 065

REACTIONS (11)
  - Neuropathy peripheral [Unknown]
  - Pruritus [Unknown]
  - Nasal septum deviation [Unknown]
  - Vertigo [Unknown]
  - Balance disorder [Unknown]
  - Hypoaesthesia [Unknown]
  - Sinusitis [Unknown]
  - Rash macular [Unknown]
  - Migraine with aura [Unknown]
  - Pain [Unknown]
  - Somnolence [Unknown]
